FAERS Safety Report 24612764 (Version 1)
Quarter: 2024Q4

REPORT INFORMATION
  Report Type: Spontaneous
  Country: US (occurrence: None)
  Receive Date: 20241112
  Receipt Date: 20241112
  Transmission Date: 20250115
  Serious: Yes (Hospitalization)
  Sender: Public
  Company Number: None

PATIENT
  Age: 79 Year
  Sex: Male

DRUGS (1)
  1. DAPTOMYCIN [Suspect]
     Active Substance: DAPTOMYCIN
     Indication: Infection

REACTIONS (5)
  - Pneumonia [None]
  - Dyspnoea [None]
  - Chest pain [None]
  - Respiratory failure [None]
  - Therapy change [None]

NARRATIVE: CASE EVENT DATE: 20240612
